FAERS Safety Report 4501064-7 (Version None)
Quarter: 2004Q4

REPORT INFORMATION
  Report Type: 
  Country: None (occurrence: None)
  Receive Date: 20041109
  Receipt Date: 20041027
  Transmission Date: 20050328
  Serious: Yes (Death, Hospitalization, Other)
  Sender: FDA-Public Use
  Company Number: US_030695521

PATIENT
  Age: 16 Year
  Sex: Male
  Weight: 68 kg

DRUGS (3)
  1. STRATTERA [Suspect]
     Indication: ATTENTION DEFICIT/HYPERACTIVITY DISORDER
     Dosage: 80 MG/DAY
     Dates: start: 20030531, end: 20030615
  2. EFFEXOR [Concomitant]
  3. TEGRETOL (CARBAMAZEPINE RIVOPHARMD) [Concomitant]

REACTIONS (16)
  - ABNORMAL BEHAVIOUR [None]
  - ACUTE RESPIRATORY DISTRESS SYNDROME [None]
  - BLOOD AMYLASE INCREASED [None]
  - CARDIAC ARREST [None]
  - CONGESTIVE CARDIOMYOPATHY [None]
  - DEHYDRATION [None]
  - DYSPNOEA [None]
  - EPISTAXIS [None]
  - HEADACHE [None]
  - INSOMNIA [None]
  - LIPASE INCREASED [None]
  - LISTLESS [None]
  - NAUSEA [None]
  - PERICARDIAL EFFUSION [None]
  - SYNCOPE [None]
  - VOMITING [None]
